FAERS Safety Report 25917785 (Version 1)
Quarter: 2025Q4

REPORT INFORMATION
  Report Type: Spontaneous
  Country: US (occurrence: US)
  Receive Date: 20251014
  Receipt Date: 20251014
  Transmission Date: 20260117
  Serious: No
  Sender: Haleon PLC
  Company Number: US-HALEON-2267723

PATIENT

DRUGS (2)
  1. TUMS [Suspect]
     Active Substance: CALCIUM CARBONATE
     Indication: Impaired gastric emptying
  2. TUMS [Suspect]
     Active Substance: CALCIUM CARBONATE
     Indication: Coeliac disease

REACTIONS (2)
  - Drug effective for unapproved indication [Unknown]
  - Product use in unapproved indication [Unknown]
